FAERS Safety Report 5215664-2 (Version None)
Quarter: 2007Q1

REPORT INFORMATION
  Report Type: 
  Country: None (occurrence: None)
  Receive Date: 20070117
  Receipt Date: 20070102
  Transmission Date: 20070707
  Serious: Yes (Other)
  Sender: FDA-Public Use
  Company Number: 2007BM000002

PATIENT
  Age: 61 Year
  Sex: Male

DRUGS (5)
  1. PREDNISOLONE [Suspect]
     Indication: CASTLEMAN'S DISEASE
     Dosage: 30 MG;
  2. CYCLOPHOSPHAMIDE [Suspect]
     Indication: CASTLEMAN'S DISEASE
  3. VINCRISTINE [Suspect]
     Indication: CASTLEMAN'S DISEASE
  4. IMMUNOSUPPRESSIVE AGENTS (IMMUNOSUPPRESSIVE AGENTS) [Suspect]
     Indication: CASTLEMAN'S DISEASE
  5. ORAPRED [Suspect]

REACTIONS (11)
  - ABDOMINAL PAIN UPPER [None]
  - ANAEMIA [None]
  - DYSURIA [None]
  - FATIGUE [None]
  - KAPOSI'S SARCOMA [None]
  - LIVER DISORDER [None]
  - LOCALISED OEDEMA [None]
  - LYMPHADENOPATHY [None]
  - NIGHT SWEATS [None]
  - PYREXIA [None]
  - SPLEEN DISORDER [None]
